FAERS Safety Report 13454453 (Version 1)
Quarter: 2017Q2

REPORT INFORMATION
  Report Type: Spontaneous
  Country: US (occurrence: US)
  Receive Date: 20170418
  Receipt Date: 20170418
  Transmission Date: 20170830
  Serious: Yes (Other)
  Sender: FDA-Public Use
  Company Number: US-PFIZER INC-2017162444

PATIENT
  Sex: Female

DRUGS (1)
  1. XELJANZ XR [Suspect]
     Active Substance: TOFACITINIB CITRATE
     Dosage: 11 MG, UNK

REACTIONS (13)
  - Peripheral coldness [Unknown]
  - Headache [Unknown]
  - Pain in extremity [Recovering/Resolving]
  - Pericarditis [Unknown]
  - Arthralgia [Unknown]
  - Musculoskeletal stiffness [Unknown]
  - Pain [Unknown]
  - Chest pain [Unknown]
  - Pericardial effusion [Recovered/Resolved]
  - Heart rate increased [Unknown]
  - Peripheral swelling [Recovering/Resolving]
  - Joint swelling [Unknown]
  - Skin discolouration [Unknown]

NARRATIVE: CASE EVENT DATE: 201612
